FAERS Safety Report 17542208 (Version 2)
Quarter: 2020Q1

REPORT INFORMATION
  Report Type: Report from Study
  Country: None (occurrence: RU)
  Receive Date: 20200313
  Receipt Date: 20200323
  Transmission Date: 20200409
  Serious: Yes (Hospitalization, Other)
  Sender: FDA-Public Use
  Company Number: RU-ABBVIE-20K-251-3319100-00

PATIENT
  Age: 72 Year
  Sex: Female

DRUGS (5)
  1. RIVAROXABAN [Concomitant]
     Active Substance: RIVAROXABAN
     Route: 048
  2. RIVAROXABAN [Concomitant]
     Active Substance: RIVAROXABAN
     Dosage: PHARMACEUTICAL FORM: FILMSTRIP
  3. RIVAROXABAN [Concomitant]
     Active Substance: RIVAROXABAN
     Indication: PRODUCT USED FOR UNKNOWN INDICATION
     Route: 048
  4. APIXABAN [Concomitant]
     Active Substance: APIXABAN
     Indication: PRODUCT USED FOR UNKNOWN INDICATION
     Route: 065
  5. IBRUTINIB [Suspect]
     Active Substance: IBRUTINIB
     Indication: CHRONIC LYMPHOCYTIC LEUKAEMIA
     Route: 048

REACTIONS (1)
  - Ischaemic stroke [Recovered/Resolved]
